FAERS Safety Report 16183581 (Version 1)
Quarter: 2019Q2

REPORT INFORMATION
  Report Type: Report from Study
  Country: US (occurrence: US)
  Receive Date: 20190411
  Receipt Date: 20190411
  Transmission Date: 20190711
  Serious: Yes (Hospitalization)
  Sender: FDA-Public Use
  Company Number: US-TAIHO ONCOLOGY  INC-EU-2019-01058

PATIENT
  Age: 70 Year
  Sex: Male
  Weight: 77.18 kg

DRUGS (8)
  1. ATORVASTATIN [Concomitant]
     Active Substance: ATORVASTATIN
     Dosage: HS
  2. LONSURF [Suspect]
     Active Substance: TIPIRACIL HYDROCHLORIDE\TRIFLURIDINE
     Indication: COLON CANCER METASTATIC
     Dosage: STARTED LONSURF OVER A YEAR AGO
     Route: 048
     Dates: end: 201903
  3. METOPROLOL. [Concomitant]
     Active Substance: METOPROLOL
     Dosage: HOLD IF SYSTOLIC {90 OR HR {55
  4. GABAPENTIN. [Concomitant]
     Active Substance: GABAPENTIN
  5. TAMSULOSIN [Concomitant]
     Active Substance: TAMSULOSIN
  6. DIAZEPAM. [Concomitant]
     Active Substance: DIAZEPAM
     Dosage: 1-2 TID PRN
  7. OXYCODONE [Concomitant]
     Active Substance: OXYCODONE
     Dosage: 1-2 Q4H PRN
  8. OXYBUTYNIN IR [Concomitant]
     Dosage: IR

REACTIONS (9)
  - Pyrexia [Unknown]
  - Cardiac disorder [Unknown]
  - Heart rate decreased [Unknown]
  - Atrial fibrillation [Unknown]
  - Asthenia [Unknown]
  - Acute myocardial infarction [Unknown]
  - Fatigue [Unknown]
  - Malaise [Unknown]
  - Fall [Unknown]

NARRATIVE: CASE EVENT DATE: 201903
